FAERS Safety Report 11142712 (Version 1)
Quarter: 2015Q2

REPORT INFORMATION
  Report Type: Spontaneous
  Country: US (occurrence: None)
  Receive Date: 20150526
  Receipt Date: 20150526
  Transmission Date: 20150821
  Serious: No
  Sender: FDA-Public Use
  Company Number: None

PATIENT
  Age: 14 Year
  Sex: Female
  Weight: 47.63 kg

DRUGS (2)
  1. MONTELUKAST [Suspect]
     Active Substance: MONTELUKAST SODIUM
     Indication: SEASONAL ALLERGY
     Dosage: 1 PILL
     Route: 048
     Dates: start: 20150501, end: 20150514
  2. ALLEGRA [Concomitant]
     Active Substance: FEXOFENADINE HYDROCHLORIDE

REACTIONS (6)
  - Diarrhoea [None]
  - Depression [None]
  - School refusal [None]
  - Anxiety [None]
  - Pollakiuria [None]
  - Crying [None]

NARRATIVE: CASE EVENT DATE: 20150501
